FAERS Safety Report 25436225 (Version 1)
Quarter: 2025Q2

REPORT INFORMATION
  Report Type: Spontaneous
  Country: PL (occurrence: PL)
  Receive Date: 20250614
  Receipt Date: 20250614
  Transmission Date: 20250716
  Serious: Yes (Other)
  Sender: AUROBINDO
  Company Number: PL-URPL-DML-MLP.4401.2.12153.2021

PATIENT
  Sex: Female

DRUGS (1)
  1. VENLAFAXINE HYDROCHLORIDE [Suspect]
     Active Substance: VENLAFAXINE HYDROCHLORIDE
     Indication: Product used for unknown indication
     Route: 048

REACTIONS (7)
  - Haematochezia [Unknown]
  - Chills [Unknown]
  - Arthralgia [Unknown]
  - Chest discomfort [Unknown]
  - Tinnitus [Unknown]
  - Dizziness [Unknown]
  - Asthenia [Unknown]
